FAERS Safety Report 8050149-X (Version None)
Quarter: 2012Q1

REPORT INFORMATION
  Report Type: 
  Country: None (occurrence: None)
  Receive Date: 20120111
  Receipt Date: 20110512
  Transmission Date: 20120608
  Serious: Yes (Hospitalization)
  Sender: FDA-Public Use
  Company Number: 2011-02047

PATIENT
  Age: 37 Year
  Sex: Male

DRUGS (5)
  1. TUBERSOL [Suspect]
     Dates: start: 20110404, end: 20110404
  2. TORSEMIDE [Concomitant]
  3. DIOVAN [Concomitant]
  4. COREG CR [Concomitant]
  5. HYRDALAZINE [Concomitant]

REACTIONS (11)
  - ANGIOEDEMA [None]
  - DYSPHONIA [None]
  - CHILLS [None]
  - HEADACHE [None]
  - TREMOR [None]
  - PRURITUS [None]
  - HYPERTENSIVE CRISIS [None]
  - RENAL FAILURE [None]
  - DYSPNOEA [None]
  - CHEST PAIN [None]
  - HYPERHIDROSIS [None]
